FAERS Safety Report 9314017 (Version 2)
Quarter: 2013Q2

REPORT INFORMATION
  Report Type: Spontaneous
  Country: JP (occurrence: JP)
  Receive Date: 20130529
  Receipt Date: 20130611
  Transmission Date: 20140414
  Serious: Yes (Death, Hospitalization, Other)
  Sender: FDA-Public Use
  Company Number: JP-CELGENEUS-087-21660-13053534

PATIENT
  Age: 66 Year
  Sex: Female
  Weight: 33 kg

DRUGS (6)
  1. ABRAXANE [Suspect]
     Indication: METASTATIC GASTRIC CANCER
     Dosage: 200 MILLIGRAM
     Route: 041
     Dates: start: 20130509, end: 20130509
  2. FULCALIQ [Concomitant]
     Indication: PRODUCT USED FOR UNKNOWN INDICATION
     Dosage: 1 DOSAGE FORM
     Route: 041
     Dates: start: 20130428, end: 20130517
  3. SANDOSTATIN [Concomitant]
     Indication: PRODUCT USED FOR UNKNOWN INDICATION
     Dosage: 3A
     Route: 065
     Dates: start: 20130508, end: 20130517
  4. ESRON B [Concomitant]
     Indication: PRODUCT USED FOR UNKNOWN INDICATION
     Dosage: 1000 MILLILITER
     Route: 041
     Dates: start: 20130504, end: 20130513
  5. DECADRON [Concomitant]
     Indication: PRODUCT USED FOR UNKNOWN INDICATION
     Dosage: 8 MILLIGRAM
     Route: 065
     Dates: start: 20130509, end: 20130509
  6. GRAN [Concomitant]
     Indication: PRODUCT USED FOR UNKNOWN INDICATION
     Dosage: 75 MICROGRAM
     Route: 065
     Dates: start: 20130515

REACTIONS (4)
  - Granulocyte count decreased [Fatal]
  - Pneumonia [Fatal]
  - Gastric cancer [Fatal]
  - White blood cell count decreased [Recovering/Resolving]
